FAERS Safety Report 15323890 (Version 1)
Quarter: 2018Q3

REPORT INFORMATION
  Report Type: Spontaneous
  Country: PL (occurrence: PL)
  Receive Date: 20180828
  Receipt Date: 20180828
  Transmission Date: 20181010
  Serious: Yes (Other)
  Sender: FDA-Public Use
  Company Number: PL-ROCHE-2175044

PATIENT
  Sex: Female
  Weight: 85 kg

DRUGS (2)
  1. ZELBORAF [Suspect]
     Active Substance: VEMURAFENIB
     Indication: MALIGNANT MELANOMA
     Dosage: FULL DOSE
     Route: 065
     Dates: start: 20180514, end: 20180720
  2. COTELLIC [Suspect]
     Active Substance: COBIMETINIB
     Indication: MALIGNANT MELANOMA
     Dosage: FULL DOSE
     Route: 065
     Dates: start: 20180514, end: 20180720

REACTIONS (7)
  - Abdominal pain [Unknown]
  - Weight decreased [Unknown]
  - Vomiting [Unknown]
  - Nausea [Unknown]
  - Rash pustular [Unknown]
  - Decreased appetite [Unknown]
  - Pyrexia [Unknown]
